FAERS Safety Report 6763238-4 (Version None)
Quarter: 2010Q2

REPORT INFORMATION
  Report Type: 
  Country: None (occurrence: None)
  Receive Date: 20100610
  Receipt Date: 20100527
  Transmission Date: 20101027
  Serious: Yes (Hospitalization, Other)
  Sender: FDA-Public Use
  Company Number: US-ASTRAZENECA-2010SE26462

PATIENT
  Age: 70 Year
  Sex: Female

DRUGS (15)
  1. SEROQUEL [Suspect]
     Route: 048
     Dates: start: 20021003
  2. SEROQUEL [Suspect]
     Route: 048
     Dates: start: 20050630
  3. PREMARIN [Concomitant]
     Dates: start: 20030305
  4. TRILEPTAL [Concomitant]
     Dates: start: 20021213
  5. PLAVIX [Concomitant]
     Dates: start: 20021112
  6. TOPAMAX [Concomitant]
     Dates: start: 20021108
  7. NEURONTIN [Concomitant]
     Dates: start: 20021106
  8. ZYPREXA [Concomitant]
     Dates: start: 20020909
  9. ZYPREXA [Concomitant]
     Dates: start: 20051025
  10. ZYPREXA [Concomitant]
     Dosage: 20 MG ONE OR TWO EVERY SIX HOURS
     Dates: start: 20050101
  11. DEPAKOTE [Concomitant]
     Dates: start: 20020906
  12. DEPAKOTE [Concomitant]
     Dates: start: 20051025
  13. LITHIUM [Concomitant]
     Dates: start: 20041025
  14. DEXAMETHASONE [Concomitant]
     Dates: start: 20050101
  15. VICODIN [Concomitant]
     Dosage: EVERY FOUR HOURS PRN
     Dates: start: 20050101

REACTIONS (18)
  - BIPOLAR DISORDER [None]
  - CARDIAC DISORDER [None]
  - CATARACT [None]
  - CHRONIC OBSTRUCTIVE PULMONARY DISEASE [None]
  - DIABETES MELLITUS INADEQUATE CONTROL [None]
  - ESSENTIAL HYPERTENSION [None]
  - GLUCOSE TOLERANCE IMPAIRED [None]
  - HYPERLIPIDAEMIA [None]
  - HYPERTRIGLYCERIDAEMIA [None]
  - LEUKOCYTOSIS [None]
  - METASTATIC NEOPLASM [None]
  - OSTEOPENIA [None]
  - OSTEOPOROSIS [None]
  - PNEUMONITIS [None]
  - SINUS TACHYCARDIA [None]
  - THALASSAEMIA BETA [None]
  - URINARY TRACT INFECTION [None]
  - UTERINE DISORDER [None]
